FAERS Safety Report 6522133-6 (Version None)
Quarter: 2009Q4

REPORT INFORMATION
  Report Type: 
  Country: None (occurrence: None)
  Receive Date: 20091230
  Receipt Date: 20091216
  Transmission Date: 20100525
  Serious: Yes (Death)
  Sender: FDA-Public Use
  Company Number: CH-PFIZER INC-2009310957

PATIENT
  Age: 82 Year
  Sex: Female

DRUGS (14)
  1. SORTIS [Suspect]
     Indication: HYPERCHOLESTEROLAEMIA
     Dosage: 20 MG, 1X/DAY
     Route: 048
     Dates: end: 20091202
  2. ALDACTONE [Suspect]
     Indication: ESSENTIAL HYPERTENSION
     Dosage: 25 MG, 1X/DAY
     Route: 048
     Dates: end: 20091124
  3. SEROQUEL [Suspect]
     Indication: RESTLESSNESS
     Dosage: 5 MG, 1X/DAY
     Route: 048
     Dates: start: 20091123, end: 20091202
  4. SEROQUEL [Suspect]
     Indication: AGITATION
  5. PANTOPRAZOLE [Suspect]
     Dosage: 40 MG, 1X/DAY
     Route: 048
     Dates: end: 20091202
  6. MEMANTINE HYDROCHLORIDE [Suspect]
     Indication: DEMENTIA ALZHEIMER'S TYPE
     Dosage: 10 MG, 1X/DAY
     Route: 048
     Dates: start: 20091126, end: 20091202
  7. DAFALGAN [Suspect]
     Dosage: 500 MG, 3X/DAY
     Route: 048
     Dates: start: 20091127, end: 20091129
  8. BELOC [Suspect]
     Indication: ESSENTIAL HYPERTENSION
     Dosage: 25 MG, 2X/DAY
     Route: 048
     Dates: start: 20091128
  9. ASPIRIN [Concomitant]
     Dosage: 100 MG, UNK
     Route: 048
  10. BUDENOFALK [Concomitant]
     Dosage: 3 MG, 3X/DAY
     Route: 048
  11. TORSEMIDE [Concomitant]
     Dosage: 10 MG, 1X/DAY
     Route: 048
  12. VITARUBIN [Concomitant]
     Dosage: 1000 MG, THREE TIMES PER WEEK
     Route: 048
     Dates: start: 20091123
  13. FRAGMIN [Concomitant]
     Dosage: 1 DF, 1X/DAY
     Route: 058
     Dates: start: 20091123, end: 20091128
  14. AUGMENTIN [Concomitant]
     Dosage: UNK
     Route: 041
     Dates: start: 20091201

REACTIONS (2)
  - HEPATOCELLULAR INJURY [None]
  - INTERNATIONAL NORMALISED RATIO INCREASED [None]
